FAERS Safety Report 8581118-9 (Version None)
Quarter: 2012Q3

REPORT INFORMATION
  Report Type: 
  Country: None (occurrence: None)
  Receive Date: 20120809
  Receipt Date: 20120803
  Transmission Date: 20120928
  Serious: Yes (Hospitalization)
  Sender: FDA-Public Use
  Company Number: US-AMGEN-USASP2012042262

PATIENT
  Age: 68 Year
  Sex: Male

DRUGS (6)
  1. AMLODIPINE [Concomitant]
     Indication: HYPERTENSION
     Dosage: UNK UNK, QD
     Route: 048
  2. HYDROCHLOROTHIAZIDE [Concomitant]
     Indication: HYPERTENSION
     Dosage: UNK UNK, QD
     Route: 048
  3. PREDNISONE TAB [Concomitant]
     Indication: RHEUMATOID ARTHRITIS
     Dosage: 7 MG, QD
     Route: 048
  4. ASPIRIN [Concomitant]
     Indication: ARTERIOSCLEROSIS
     Dosage: 81 MG, QD
     Route: 048
  5. ENBREL [Suspect]
     Indication: RHEUMATOID ARTHRITIS
     Dosage: 50 MG, QWK
     Route: 058
     Dates: start: 20120112, end: 20120503
  6. RISPERDAL [Concomitant]
     Dosage: 0.5 MG, BID
     Route: 048

REACTIONS (1)
  - CEREBROVASCULAR ACCIDENT [None]
